FAERS Safety Report 9038848 (Version 3)
Quarter: 2013Q2

REPORT INFORMATION
  Report Type: Report from Study
  Country: US (occurrence: US)
  Receive Date: 20130129
  Receipt Date: 20130610
  Transmission Date: 20140414
  Serious: Yes (Life-Threatening, Hospitalization, Other)
  Sender: FDA-Public Use
  Company Number: US-US-EMD SERONO, INC.-7189832

PATIENT
  Age: 57 Year
  Sex: Female

DRUGS (1)
  1. REBIF [Suspect]
     Indication: MULTIPLE SCLEROSIS
     Route: 058
     Dates: start: 20120508, end: 201301

REACTIONS (7)
  - Haemorrhagic stroke [Not Recovered/Not Resolved]
  - Cerebral thrombosis [Unknown]
  - Dementia [Not Recovered/Not Resolved]
  - Carotid artery occlusion [Unknown]
  - Lung disorder [Not Recovered/Not Resolved]
  - Dysphagia [Unknown]
  - Decreased appetite [Not Recovered/Not Resolved]
